APPROVED DRUG PRODUCT: BUPRENORPHINE HYDROCHLORIDE AND NALOXONE HYDROCHLORIDE
Active Ingredient: BUPRENORPHINE HYDROCHLORIDE; NALOXONE HYDROCHLORIDE
Strength: EQ 2MG BASE;EQ 0.5MG BASE
Dosage Form/Route: FILM;BUCCAL, SUBLINGUAL
Application: A219850 | Product #001 | TE Code: AB
Applicant: ASCENT PHARMACEUTICALS INC
Approved: Jan 21, 2026 | RLD: No | RS: No | Type: RX